FAERS Safety Report 7945485-9 (Version None)
Quarter: 2011Q4

REPORT INFORMATION
  Report Type: 
  Country: None (occurrence: None)
  Receive Date: 20111129
  Receipt Date: 20111122
  Transmission Date: 20120403
  Serious: Yes (Other)
  Sender: FDA-Public Use
  Company Number: FR-BAYER-2011-112823

PATIENT
  Age: 38 Year
  Sex: Female

DRUGS (4)
  1. VITAMIN B-12 [Concomitant]
  2. MYCOHYDRALIN [Suspect]
  3. DESOGESTREL [Concomitant]
     Indication: CONTRACEPTION
  4. PROBIOTICS [Concomitant]
     Route: 048

REACTIONS (1)
  - VAGINAL HAEMORRHAGE [None]
